FAERS Safety Report 18187747 (Version 1)
Quarter: 2020Q3

REPORT INFORMATION
  Report Type: Spontaneous
  Country: US (occurrence: US)
  Receive Date: 20200824
  Receipt Date: 20200824
  Transmission Date: 20201103
  Serious: No
  Sender: FDA-Public Use
  Company Number: US-CADILA HEALTHCARE LIMITED-US-ZYDUS-050947

PATIENT
  Sex: Female

DRUGS (1)
  1. BOSENTAN 125 MG TABLETS [Suspect]
     Active Substance: BOSENTAN
     Indication: PULMONARY ARTERIAL HYPERTENSION
     Dosage: 125 MILLIGRAM, BID
     Route: 048
     Dates: start: 20190626

REACTIONS (9)
  - Dyspnoea at rest [Unknown]
  - Chest discomfort [Unknown]
  - Abdominal distension [Unknown]
  - Dyspnoea exertional [Unknown]
  - Fatigue [Unknown]
  - Drug ineffective [Unknown]
  - Peripheral swelling [Unknown]
  - Weight increased [Unknown]
  - Chest pain [Unknown]

NARRATIVE: CASE EVENT DATE: 2020
